FAERS Safety Report 12421638 (Version 4)
Quarter: 2016Q3

REPORT INFORMATION
  Report Type: Spontaneous
  Country: DE (occurrence: DE)
  Receive Date: 20160531
  Receipt Date: 20160901
  Transmission Date: 20161109
  Serious: Yes (Hospitalization, Other)
  Sender: FDA-Public Use
  Company Number: DE-PFIZER INC-2016250712

PATIENT
  Age: 41 Year
  Sex: Male
  Weight: 83 kg

DRUGS (7)
  1. CELEBREX [Suspect]
     Active Substance: CELECOXIB
     Indication: MULTIPLE INJURIES
     Dosage: 200MG IN THE MORNING, 100MG IN THE EVENING
  2. PANTOPRAZOL [Concomitant]
     Active Substance: PANTOPRAZOLE SODIUM
     Indication: PROPHYLAXIS AGAINST GASTROINTESTINAL ULCER
     Dosage: 20 MG, UNK
     Route: 048
     Dates: start: 2009
  3. CANDESARTAN ACTAVIS [Concomitant]
     Active Substance: CANDESARTAN
     Dosage: UNK
     Dates: start: 2013
  4. AMINEURIN [Concomitant]
     Active Substance: AMITRIPTYLINE HYDROCHLORIDE
     Dosage: 25 MG, UNK
     Dates: start: 2008
  5. CELEBREX [Suspect]
     Active Substance: CELECOXIB
     Indication: PAIN
     Dosage: 100 MG, 1X/DAY,
     Dates: start: 20090224
  6. CELEBREX [Suspect]
     Active Substance: CELECOXIB
     Indication: PAIN
     Dosage: 100 MG, 2X/DAY, IN THE MORNING AND IN THE EVENING
     Dates: start: 20090903, end: 2014
  7. SAROTEN [Concomitant]
     Active Substance: AMITRIPTYLINE
     Indication: POLYNEUROPATHY
     Dosage: 25 MG, UNK
     Route: 048
     Dates: start: 2009

REACTIONS (2)
  - Erysipelas [Unknown]
  - Deep vein thrombosis [Not Recovered/Not Resolved]

NARRATIVE: CASE EVENT DATE: 201412
